FAERS Safety Report 11869878 (Version 1)
Quarter: 2015Q4

REPORT INFORMATION
  Report Type: Report from Study
  Country: US (occurrence: US)
  Receive Date: 20151228
  Receipt Date: 20151228
  Transmission Date: 20160305
  Serious: No
  Sender: FDA-Public Use
  Company Number: US-AMGEN-USASL2015138036

PATIENT
  Age: 56 Year
  Sex: Female

DRUGS (1)
  1. ENBREL [Suspect]
     Active Substance: ETANERCEPT
     Indication: PSORIATIC ARTHROPATHY
     Dosage: 25 MG, QWK
     Route: 065
     Dates: start: 20140926

REACTIONS (7)
  - Skin warm [Unknown]
  - Off label use [Unknown]
  - Joint swelling [Unknown]
  - Arthralgia [Unknown]
  - Nodule [Unknown]
  - Erythema [Unknown]
  - Tenderness [Unknown]

NARRATIVE: CASE EVENT DATE: 20140926
